FAERS Safety Report 5592930-2 (Version None)
Quarter: 2008Q1

REPORT INFORMATION
  Report Type: 
  Country: None (occurrence: None)
  Receive Date: 20080116
  Receipt Date: 20080107
  Transmission Date: 20080703
  Serious: Yes (Death, Hospitalization)
  Sender: FDA-Public Use
  Company Number: US-AMGEN-US238501

PATIENT
  Sex: Male
  Weight: 106.2 kg

DRUGS (14)
  1. PROCRIT [Suspect]
     Indication: ANAEMIA OF MALIGNANT DISEASE
     Route: 058
     Dates: start: 20070724, end: 20070724
  2. PROCRIT [Suspect]
     Route: 058
     Dates: start: 20070501, end: 20070501
  3. PROCRIT [Suspect]
     Route: 058
     Dates: start: 20070508, end: 20070508
  4. PROCRIT [Suspect]
     Route: 058
     Dates: start: 20070605, end: 20070605
  5. PROCRIT [Suspect]
     Route: 065
     Dates: start: 20070611, end: 20070611
  6. PROCRIT [Suspect]
     Route: 058
     Dates: start: 20070424, end: 20070424
  7. ALIMTA [Concomitant]
     Route: 042
     Dates: start: 20070723, end: 20070723
  8. FOLIC ACID [Concomitant]
     Route: 065
  9. DECADRON [Concomitant]
     Route: 042
     Dates: start: 20070403, end: 20070612
  10. VITAMIN B-12 [Concomitant]
     Route: 030
     Dates: start: 20070703, end: 20070703
  11. ALOXI [Concomitant]
     Route: 042
     Dates: start: 20070403, end: 20070723
  12. PEPCID [Concomitant]
     Route: 042
     Dates: start: 20070403, end: 20070612
  13. TAXOTERE [Concomitant]
     Route: 042
     Dates: start: 20070403, end: 20070712
  14. OXYGEN [Concomitant]
     Route: 065

REACTIONS (5)
  - DEATH [None]
  - NEUTROPENIA [None]
  - PNEUMONIA [None]
  - RESPIRATORY FAILURE [None]
  - SUPRAVENTRICULAR TACHYARRHYTHMIA [None]
